FAERS Safety Report 4808966-2 (Version None)
Quarter: 2005Q4

REPORT INFORMATION
  Report Type: 
  Country: None (occurrence: None)
  Receive Date: 20051025
  Receipt Date: 20050901
  Transmission Date: 20060501
  Serious: Yes (Life-Threatening)
  Sender: FDA-Public Use
  Company Number: JP-ROCHE-416519

PATIENT
  Age: 77 Year
  Sex: Female

DRUGS (8)
  1. ROCEPHIN [Suspect]
     Indication: PNEUMONIA
     Route: 041
     Dates: start: 20050729, end: 20050729
  2. CEFOTIAM HYDROCHLORIDE [Concomitant]
     Indication: PNEUMONIA
     Dosage: DRUG NAME REPORTED AS PACETCOOL. STOPPED ON 26 JULY 2005, RESTARTED ON 30 JULY 2005.
     Route: 041
     Dates: start: 20050719, end: 20050731
  3. ASPIRIN [Concomitant]
     Dosage: STARTED BEFORE MARCH 2004. STOPPED ON 17 JULY 2005, THEN RESTARTED ON 20 JULY 2005
     Route: 048
     Dates: start: 20040315
  4. ALDACTONE [Concomitant]
     Dosage: STARTED BEFORE MARCH 2004. ORAL FORMULATION (UNSPECIFIED)
     Route: 048
     Dates: start: 20040315
  5. BLOPRESS [Concomitant]
     Route: 048
     Dates: start: 20050727
  6. BUSCOPAN [Concomitant]
     Route: 048
     Dates: start: 20050729, end: 20050730
  7. VENETLIN [Concomitant]
     Route: 055
     Dates: start: 20050729, end: 20050804
  8. BISOLVON [Concomitant]
     Route: 055
     Dates: start: 20050729, end: 20050804

REACTIONS (6)
  - ALANINE AMINOTRANSFERASE INCREASED [None]
  - ASPARTATE AMINOTRANSFERASE INCREASED [None]
  - CARDIAC FAILURE [None]
  - DISSEMINATED INTRAVASCULAR COAGULATION [None]
  - GENERAL PHYSICAL HEALTH DETERIORATION [None]
  - LIVER DISORDER [None]
